FAERS Safety Report 20769608 (Version 1)
Quarter: 2022Q2

REPORT INFORMATION
  Report Type: Spontaneous
  Country: US (occurrence: None)
  Receive Date: 20220429
  Receipt Date: 20220429
  Transmission Date: 20220721
  Serious: Yes (Other)
  Sender: FDA-Public Use
  Company Number: None

PATIENT
  Sex: Male

DRUGS (2)
  1. GLIMEPIRIDE [Suspect]
     Active Substance: GLIMEPIRIDE
  2. GLIPIZIDE [Suspect]
     Active Substance: GLIPIZIDE

REACTIONS (1)
  - Blood glucose decreased [None]
